FAERS Safety Report 17716862 (Version 1)
Quarter: 2020Q2

REPORT INFORMATION
  Report Type: Spontaneous
  Country: US (occurrence: US)
  Receive Date: 20200428
  Receipt Date: 20200428
  Transmission Date: 20200714
  Serious: No
  Sender: FDA-Public Use
  Company Number: US-HORIZON-KRY-0557-2020

PATIENT
  Age: 67 Year
  Sex: Male

DRUGS (1)
  1. KRYSTEXXA [Suspect]
     Active Substance: PEGLOTICASE
     Indication: ATROPHY
     Dosage: EVERY 2 WEEKS
     Dates: end: 202002

REACTIONS (2)
  - Off label use [Unknown]
  - Pain [Unknown]
